FAERS Safety Report 5867083-3 (Version None)
Quarter: 2008Q3

REPORT INFORMATION
  Report Type: 
  Country: None (occurrence: None)
  Receive Date: 20080902
  Receipt Date: 20080829
  Transmission Date: 20090109
  Serious: Yes (Other)
  Sender: FDA-Public Use
  Company Number: B0534910A

PATIENT
  Age: 13 Year
  Sex: Male

DRUGS (3)
  1. ALKERAN [Suspect]
     Route: 042
  2. TOTAL BODY IRRADIATION [Suspect]
  3. CHEMOTHERAPY [Concomitant]

REACTIONS (2)
  - BONE SARCOMA [None]
  - JOINT SWELLING [None]
